FAERS Safety Report 5375714-X (Version None)
Quarter: 2007Q2

REPORT INFORMATION
  Report Type: 
  Country: None (occurrence: None)
  Receive Date: 20070628
  Receipt Date: 20070619
  Transmission Date: 20071010
  Serious: Yes (Death, Hospitalization)
  Sender: FDA-Public Use
  Company Number: 2007-02923

PATIENT
  Age: 59 Year
  Sex: Male

DRUGS (1)
  1. COLCHICUM JTL LIQ [Suspect]
     Indication: DRUG USE FOR UNKNOWN INDICATION
     Dosage: 18 MG, SINGLE, ORAL
     Route: 048
     Dates: end: 20070101

REACTIONS (5)
  - ACCIDENTAL OVERDOSE [None]
  - ARRHYTHMIA [None]
  - CARDIAC ARREST [None]
  - POISONING [None]
  - SHOCK [None]
